FAERS Safety Report 7397656-0 (Version None)
Quarter: 2011Q2

REPORT INFORMATION
  Report Type: 
  Country: None (occurrence: None)
  Receive Date: 20110406
  Receipt Date: 20110325
  Transmission Date: 20111010
  Serious: Yes (Hospitalization)
  Sender: FDA-Public Use
  Company Number: PHHY2011FR24923

PATIENT
  Sex: Female

DRUGS (11)
  1. FLUOROURACIL [Suspect]
     Indication: PANCREATIC CARCINOMA METASTATIC
     Dosage: 3700 MG, CYCLIC
     Route: 041
     Dates: start: 20110119, end: 20110119
  2. COOLMETEC [Concomitant]
     Indication: HYPERTENSION
     Dosage: 1 DF, AT 05 PM
  3. LANSOYL [Concomitant]
     Dosage: UNK
  4. CAMPTOSAR [Suspect]
     Indication: PANCREATIC CARCINOMA METASTATIC
     Dosage: 164 MG, CYCLIC
     Route: 042
     Dates: start: 20110119, end: 20110119
  5. PRAVASTATIN SODIUM [Concomitant]
     Indication: DYSLIPIDAEMIA
     Dosage: 1 DF, AT 06 PM
  6. TEMESTA [Concomitant]
     Dosage: 1 DF, AT 6 PM
  7. RASILEZ [Concomitant]
     Indication: HYPERTENSION
     Dosage: 1 DF, AT 06 PM
  8. ESOMEPRAZOLE [Concomitant]
     Dosage: 1 DF, AT 06 PM
  9. CAMPTOSAR [Suspect]
     Dosage: UNK
     Dates: start: 20110121, end: 20110121
  10. HYPERIUM [Concomitant]
     Dosage: 1 DF, AT 08 AM
  11. NORMACOL [Concomitant]
     Dosage: UNK

REACTIONS (7)
  - FALL [None]
  - SINUS BRADYCARDIA [None]
  - ANURIA [None]
  - BLOOD CREATININE INCREASED [None]
  - SYNCOPE [None]
  - LEFT VENTRICULAR END-DIASTOLIC PRESSURE DECREASED [None]
  - HEAD INJURY [None]
